FAERS Safety Report 4292116-8 (Version None)
Quarter: 2004Q1

REPORT INFORMATION
  Report Type: 
  Country: None (occurrence: None)
  Receive Date: 20040211
  Receipt Date: 20031209
  Transmission Date: 20041129
  Serious: No
  Sender: FDA-Public Use
  Company Number: US-GLAXOSMITHKLINE-A0442554A

PATIENT
  Age: 50 Year
  Sex: Female

DRUGS (4)
  1. LAMICTAL [Suspect]
     Indication: BIPOLAR DISORDER
     Dosage: 37.5MG TWICE PER DAY
     Route: 048
     Dates: start: 20031107
  2. LITHIUM [Concomitant]
  3. PROZAC [Concomitant]
  4. LORAZEPAM [Concomitant]

REACTIONS (2)
  - HEADACHE [None]
  - WEIGHT INCREASED [None]
